FAERS Safety Report 8364841-0 (Version None)
Quarter: 2012Q1

REPORT INFORMATION
  Report Type: 
  Country: None (occurrence: None)
  Receive Date: 20120323
  Receipt Date: 20111219
  Transmission Date: 20120608
  Serious: Yes (Hospitalization, Other)
  Sender: FDA-Public Use
  Company Number: 163-21880-11111718

PATIENT
  Age: 78 Year
  Sex: Female

DRUGS (5)
  1. DECADRON [Concomitant]
  2. PRILOSEC [Concomitant]
  3. REVLIMID [Suspect]
     Indication: MULTIPLE MYELOMA
     Dosage: 25 MG, DAILY FOR 21 DAYS, PO
     Route: 048
     Dates: start: 20111021
  4. OXYCODONE HCL [Concomitant]
  5. CIPRO [Concomitant]

REACTIONS (3)
  - CELLULITIS [None]
  - PLATELET COUNT DECREASED [None]
  - PANCYTOPENIA [None]
